FAERS Safety Report 5253795-1 (Version None)
Quarter: 2007Q1

REPORT INFORMATION
  Report Type: 
  Country: None (occurrence: None)
  Receive Date: 20070301
  Receipt Date: 20070219
  Transmission Date: 20070707
  Serious: Yes (Death)
  Sender: FDA-Public Use
  Company Number: AT-ABBOTT-07P-009-0359817-00

PATIENT
  Sex: Female
  Weight: 48 kg

DRUGS (3)
  1. ZEMPLAR [Suspect]
     Indication: HYPERPARATHYROIDISM SECONDARY
     Route: 042
     Dates: start: 20060411, end: 20060824
  2. ANTIPHOSPHAT [Concomitant]
     Indication: DRUG USE FOR UNKNOWN INDICATION
     Route: 048
  3. SEVELAMER HYDROCHLORIDE [Concomitant]
     Indication: DRUG USE FOR UNKNOWN INDICATION
     Route: 048
     Dates: start: 20060711

REACTIONS (1)
  - GASTROINTESTINAL NECROSIS [None]
